FAERS Safety Report 8126064 (Version 2)
Quarter: 2013Q3

REPORT INFORMATION
  Report Type: Spontaneous
  Country: JP (occurrence: JP)
  Receive Date: 20110908
  Receipt Date: 20130703
  Transmission Date: 20140515
  Serious: Yes (Death, Other)
  Sender: FDA-Public Use
  Company Number: PHHY2011JP71255

PATIENT
  Age: 66 Year
  Sex: Female

DRUGS (6)
  1. SANDOSTATIN [Suspect]
     Indication: INTESTINAL OBSTRUCTION
     Dosage: 300 UG PER DAY
     Route: 058
     Dates: start: 20101012, end: 20101017
  2. PACLITAXEL [Concomitant]
     Dosage: 06 COURSES
     Dates: start: 20100730
  3. IRINOTECAN [Concomitant]
     Dosage: 02 COURSES
     Dates: start: 20100730
  4. NEDAPLATIN [Concomitant]
     Dosage: 02 COURSES
  5. CISPLATIN [Concomitant]
     Dosage: 6 COURSES
  6. OPIOIDS [Concomitant]
     Indication: PAIN
     Dosage: UNK UKN, UNK

REACTIONS (2)
  - Death [Fatal]
  - Bradycardia [Recovered/Resolved]
